FAERS Safety Report 10334297 (Version 1)
Quarter: 2014Q3

REPORT INFORMATION
  Report Type: Spontaneous
  Country: US (occurrence: None)
  Receive Date: 20140721
  Receipt Date: 20140721
  Transmission Date: 20150326
  Serious: Yes (Disabling, Other)
  Sender: FDA-Public Use
  Company Number: None

PATIENT
  Age: 42 Year
  Sex: Female
  Weight: 112.04 kg

DRUGS (1)
  1. NORTIPTYLINE [Suspect]
     Active Substance: NORTRIPTYLINE
     Indication: MIGRAINE
     Dosage: 4 PILLS  ONCE DAILY  TAKEN BY MOUTH
     Route: 048
     Dates: start: 20131224, end: 20140515

REACTIONS (7)
  - Cognitive disorder [None]
  - Speech disorder [None]
  - Posture abnormal [None]
  - Aphasia [None]
  - Excessive eye blinking [None]
  - Disturbance in attention [None]
  - Impaired work ability [None]

NARRATIVE: CASE EVENT DATE: 20140717
